FAERS Safety Report 12636728 (Version 2)
Quarter: 2016Q3

REPORT INFORMATION
  Report Type: Spontaneous
  Country: US (occurrence: US)
  Receive Date: 20160809
  Receipt Date: 20160924
  Transmission Date: 20161109
  Serious: Yes (Other)
  Sender: FDA-Public Use
  Company Number: US-AMGEN-USASP2016099938

PATIENT
  Age: 26 Year
  Sex: Female

DRUGS (1)
  1. CORLANOR [Suspect]
     Active Substance: IVABRADINE HYDROCHLORIDE
     Indication: SINUS TACHYCARDIA
     Dosage: 5 MG, BID
     Route: 065

REACTIONS (9)
  - Vitamin D increased [Unknown]
  - Thirst [Unknown]
  - Feeling abnormal [Unknown]
  - Visual impairment [Unknown]
  - Off label use [Not Recovered/Not Resolved]
  - Weight decreased [Unknown]
  - Pollakiuria [Unknown]
  - Nervousness [Unknown]
  - Hospitalisation [Unknown]

NARRATIVE: CASE EVENT DATE: 2016
